FAERS Safety Report 7543453-2 (Version None)
Quarter: 2011Q2

REPORT INFORMATION
  Report Type: 
  Country: None (occurrence: None)
  Receive Date: 20110613
  Receipt Date: 20110531
  Transmission Date: 20111010
  Serious: Yes (Other)
  Sender: FDA-Public Use
  Company Number: US-UCBSA-019257

PATIENT
  Sex: Female

DRUGS (2)
  1. XYZAL [Suspect]
     Indication: RASH
     Dates: start: 20100801
  2. DOXEPIN [Concomitant]
     Indication: SLEEP DISORDER

REACTIONS (3)
  - THROMBOSIS [None]
  - FATIGUE [None]
  - RASH PRURITIC [None]
